FAERS Safety Report 5343769-4 (Version None)
Quarter: 2007Q2

REPORT INFORMATION
  Report Type: 
  Country: None (occurrence: None)
  Receive Date: 20070604
  Receipt Date: 20070601
  Transmission Date: 20071010
  Serious: Yes (Hospitalization)
  Sender: FDA-Public Use
  Company Number: US-BRISTOL-MYERS SQUIBB COMPANY-13747936

PATIENT
  Age: 67 Year
  Sex: Female

DRUGS (12)
  1. CYTOXAN [Suspect]
     Indication: BREAST CANCER
     Route: 042
     Dates: start: 20070301, end: 20070301
  2. ADRIAMYCIN PFS [Suspect]
     Indication: BREAST CANCER
     Route: 042
     Dates: start: 20070301, end: 20070301
  3. NEULASTA [Suspect]
     Indication: BREAST CANCER
     Route: 042
     Dates: start: 20070302, end: 20070302
  4. BEVACIZUMAB [Suspect]
     Indication: BREAST CANCER
     Route: 042
     Dates: start: 20070301, end: 20070301
  5. LORAZEPAM [Concomitant]
     Indication: NAUSEA
     Route: 048
     Dates: start: 20070201, end: 20070315
  6. ZEGERID [Concomitant]
     Indication: GASTROOESOPHAGEAL REFLUX DISEASE
     Route: 048
     Dates: start: 20070115, end: 20070310
  7. DARVOCET [Concomitant]
     Indication: PAIN
     Route: 048
     Dates: start: 20070115
  8. COMPAZINE [Concomitant]
     Indication: NAUSEA
     Route: 048
     Dates: start: 20070201
  9. PAXIL [Concomitant]
     Indication: DEPRESSION
     Route: 048
     Dates: start: 20070310
  10. DILAUDID [Concomitant]
     Indication: PAIN
     Route: 048
     Dates: start: 20070215
  11. SCOPOLAMINE [Concomitant]
     Indication: NAUSEA
     Route: 023
     Dates: start: 20070306, end: 20070313
  12. CYMBALTA [Concomitant]
     Indication: DEPRESSION
     Route: 048
     Dates: start: 20070301, end: 20070313

REACTIONS (3)
  - ABDOMINAL PAIN UPPER [None]
  - NAUSEA [None]
  - VOMITING [None]
